FAERS Safety Report 9380474 (Version 1)
Quarter: 2013Q3

REPORT INFORMATION
  Report Type: Spontaneous
  Country: DE (occurrence: DE)
  Receive Date: 20130702
  Receipt Date: 20130702
  Transmission Date: 20140515
  Serious: Yes (Hospitalization)
  Sender: FDA-Public Use
  Company Number: DE-ACTELION-A-CH2013-84856

PATIENT
  Age: 63 Year
  Sex: Female

DRUGS (8)
  1. TRACLEER [Suspect]
     Indication: PULMONARY HYPERTENSION
     Dosage: 31.2 MG, UNK
     Route: 048
     Dates: end: 20130617
  2. TRACLEER [Suspect]
     Dosage: UNK MG, BID
     Route: 048
     Dates: start: 20130604
  3. TRACLEER [Suspect]
     Dosage: 31.2 MG, BID
     Route: 048
     Dates: start: 20130621, end: 20130622
  4. RAMIPRIL [Concomitant]
     Dosage: 2.5 MG, UNK
     Dates: end: 20130617
  5. IRENAT [Concomitant]
     Dosage: UNK
     Dates: end: 20130617
  6. FAVISTAN [Concomitant]
     Dosage: UNK
     Dates: end: 20130617
  7. PANTOZOL [Concomitant]
     Dosage: 40 UNK, UNK
     Dates: end: 20130617
  8. AMIODARON [Concomitant]
     Dosage: UNK
     Dates: end: 20130617

REACTIONS (6)
  - Rash generalised [Recovering/Resolving]
  - Liver function test abnormal [Recovering/Resolving]
  - Aspartate aminotransferase increased [Recovering/Resolving]
  - Alanine aminotransferase increased [Recovering/Resolving]
  - Gamma-glutamyltransferase increased [Recovering/Resolving]
  - Hypersensitivity [Recovering/Resolving]
